FAERS Safety Report 8774213 (Version 1)
Quarter: 2012Q4

REPORT INFORMATION
  Report Type: 
  Country: US (occurrence: US)
  Receive Date: 20120907
  Receipt Date: 20120907
  Transmission Date: 20130627
  Serious: No
  Sender: FDA-Public Use
  Company Number: US-BAYER-2012-093378

PATIENT
  Age: 53 Year
  Sex: Female

DRUGS (1)
  1. BETASERON [Suspect]
     Indication: MULTIPLE SCLEROSIS
     Dosage: 0.3 mg, QOD
     Route: 058

REACTIONS (3)
  - Pain [None]
  - Malaise [None]
  - Chills [Recovered/Resolved]
